FAERS Safety Report 24294299 (Version 1)
Quarter: 2024Q3

REPORT INFORMATION
  Report Type: Spontaneous
  Country: US (occurrence: US)
  Receive Date: 20240906
  Receipt Date: 20240906
  Transmission Date: 20241016
  Serious: No
  Sender: DOMPE FARMACEUTICI
  Company Number: US-FARMAPROD-202406-2378

PATIENT
  Sex: Female
  Weight: 63.5 kg

DRUGS (13)
  1. OXERVATE [Suspect]
     Active Substance: CENEGERMIN-BKBJ
     Indication: Neurotrophic keratopathy
     Route: 047
     Dates: start: 20240516
  2. OXERVATE [Suspect]
     Active Substance: CENEGERMIN-BKBJ
  3. VENLAFAXINE HCL [Concomitant]
     Active Substance: VENLAFAXINE HYDROCHLORIDE
  4. VITAMIN C [Concomitant]
     Active Substance: ASCORBIC ACID
  5. GLUCOSAMINE HYDROCHLORIDE\SODIUM CHONDROITIN SULFATE [Concomitant]
     Active Substance: GLUCOSAMINE HYDROCHLORIDE\SODIUM CHONDROITIN SULFATE
     Dosage: 500-400 MG
  6. ASPIRIN [Concomitant]
     Active Substance: ASPIRIN
  7. ESTRADIOL [Concomitant]
     Active Substance: ESTRADIOL
  8. EZETIMIBE [Concomitant]
     Active Substance: EZETIMIBE
  9. LEVOTHYROXINE SODIUM [Concomitant]
     Active Substance: LEVOTHYROXINE SODIUM
  10. ACYCLOVIR [Concomitant]
     Active Substance: ACYCLOVIR
  11. CLONAZEPAM [Concomitant]
     Active Substance: CLONAZEPAM
  12. ATORVASTATIN CALCIUM [Concomitant]
     Active Substance: ATORVASTATIN CALCIUM
  13. BUPROPION [Concomitant]
     Active Substance: BUPROPION
     Dosage: 24 HOURS

REACTIONS (4)
  - Photophobia [Unknown]
  - Lacrimation increased [Unknown]
  - Eye pain [Unknown]
  - Therapy partial responder [Unknown]
